FAERS Safety Report 6344806-0 (Version None)
Quarter: 2009Q3

REPORT INFORMATION
  Report Type: 
  Country: None (occurrence: None)
  Receive Date: 20090904
  Receipt Date: 20090826
  Transmission Date: 20100115
  Serious: Yes (Hospitalization)
  Sender: FDA-Public Use
  Company Number: 8051011

PATIENT

DRUGS (1)
  1. KEPPRA [Suspect]

REACTIONS (1)
  - KETOSIS [None]
